FAERS Safety Report 14530823 (Version 1)
Quarter: 2018Q1

REPORT INFORMATION
  Report Type: Spontaneous
  Country: US (occurrence: US)
  Receive Date: 20180214
  Receipt Date: 20180214
  Transmission Date: 20180509
  Serious: Yes (Other)
  Sender: FDA-Public Use
  Company Number: US-PFIZER INC-2018061673

PATIENT
  Age: 27 Year
  Sex: Male
  Weight: 90.72 kg

DRUGS (1)
  1. RAPAMUNE [Suspect]
     Active Substance: SIROLIMUS
     Indication: HEART TRANSPLANT
     Dosage: 1 MG, 1X/DAY (SKIPPING TUESDAY AND THURSDAY)
     Route: 048
     Dates: end: 201801

REACTIONS (2)
  - Product use in unapproved indication [Unknown]
  - Ligament rupture [Unknown]

NARRATIVE: CASE EVENT DATE: 201801
